FAERS Safety Report 7600878-4 (Version None)
Quarter: 2011Q3

REPORT INFORMATION
  Report Type: 
  Country: None (occurrence: None)
  Receive Date: 20110708
  Receipt Date: 20110708
  Transmission Date: 20111222
  Serious: Yes (Life-Threatening)
  Sender: FDA-Public Use
  Company Number: None

PATIENT
  Age: 52 Year
  Sex: Female
  Weight: 57.6068 kg

DRUGS (1)
  1. VYVANSE [Suspect]
     Indication: ATTENTION DEFICIT/HYPERACTIVITY DISORDER
     Dosage: 1 CAPSULE DAILY BY MOUTH
     Route: 048
     Dates: start: 20110528

REACTIONS (8)
  - DRUG INEFFECTIVE [None]
  - DIZZINESS [None]
  - FATIGUE [None]
  - DRUG DISPENSING ERROR [None]
  - TINNITUS [None]
  - WEIGHT INCREASED [None]
  - SOMNOLENCE [None]
  - ABDOMINAL PAIN UPPER [None]
